FAERS Safety Report 12807506 (Version 4)
Quarter: 2018Q1

REPORT INFORMATION
  Report Type: Spontaneous
  Country: FI (occurrence: FI)
  Receive Date: 20161004
  Receipt Date: 20180215
  Transmission Date: 20180508
  Serious: Yes (Hospitalization, Other)
  Sender: FDA-Public Use
  Company Number: FI-009507513-1609FIN013106

PATIENT
  Age: 31 Year
  Sex: Female

DRUGS (7)
  1. GLYCOPYRROLATE. [Suspect]
     Active Substance: GLYCOPYRROLATE
     Indication: NEUROMUSCULAR BLOCKADE REVERSAL
     Dosage: 0.5 MG, ONCE
     Dates: start: 20160923, end: 20160923
  2. GLYCOPYRROLATE. [Suspect]
     Active Substance: GLYCOPYRROLATE
     Dosage: 0.5 MG, UNK
  3. BRIDION [Suspect]
     Active Substance: SUGAMMADEX
     Dosage: 150 MG + 200 MG
     Dates: start: 20160923, end: 20160923
  4. NEOSTIGMINE METHYLSULFATE. [Suspect]
     Active Substance: NEOSTIGMINE METHYLSULFATE
     Dosage: 2.5 MG, ONCE
     Dates: start: 20160923, end: 20160923
  5. ESMERON [Suspect]
     Active Substance: ROCURONIUM BROMIDE
     Indication: NEUROMUSCULAR BLOCKING THERAPY
     Dosage: STREGHT: 10 MG/ML, RECEIVED 40 MG + 10 MG + 10 MG + 10 MG, THAT MAKES 70 MG ALTOGETHER
     Dates: start: 20160923, end: 20160923
  6. NEOSTIGMINE METHYLSULFATE. [Suspect]
     Active Substance: NEOSTIGMINE METHYLSULFATE
     Indication: NEUROMUSCULAR BLOCKADE REVERSAL
     Dosage: 2.5 MG, ONCE
     Dates: start: 20160923, end: 20160923
  7. BRIDION [Suspect]
     Active Substance: SUGAMMADEX
     Indication: NEUROMUSCULAR BLOCKADE REVERSAL
     Dosage: 50 MG
     Dates: start: 20160923, end: 20160923

REACTIONS (4)
  - Product quality issue [Unknown]
  - Cholinergic syndrome [Recovered/Resolved]
  - Drug effect increased [Recovered/Resolved]
  - Therapy non-responder [Recovered/Resolved]

NARRATIVE: CASE EVENT DATE: 20160923
